FAERS Safety Report 7674202-5 (Version None)
Quarter: 2011Q3

REPORT INFORMATION
  Report Type: 
  Country: None (occurrence: None)
  Receive Date: 20110810
  Receipt Date: 20110805
  Transmission Date: 20111222
  Serious: Yes (Death, Hospitalization)
  Sender: FDA-Public Use
  Company Number: US-SANOFI-AVENTIS-2010SA073362

PATIENT
  Age: 66 Year
  Sex: Male
  Weight: 75 kg

DRUGS (20)
  1. JEVTANA KIT [Suspect]
     Indication: PROSTATE CANCER
     Route: 041
     Dates: start: 20100813, end: 20100813
  2. PREDNISONE [Concomitant]
     Route: 048
     Dates: end: 20100101
  3. ARANESP [Concomitant]
     Dosage: STARTING DAY 1 EVERY 3 WEEKS
     Route: 058
     Dates: start: 20100813
  4. MS CONTIN [Concomitant]
     Dates: start: 20100101, end: 20100101
  5. LEUPROLIDE ACETATE [Concomitant]
     Dosage: EVERY 3 MONTHS
     Route: 030
     Dates: end: 20100101
  6. LOTREL [Concomitant]
     Dosage: 5/10 MG
     Dates: end: 20100101
  7. HYDROCHLOROTHIAZIDE [Concomitant]
     Dates: end: 20100101
  8. GABAPENTIN [Concomitant]
     Route: 048
     Dates: end: 20100101
  9. MS CONTIN [Concomitant]
     Route: 048
     Dates: end: 20100101
  10. LANSOPRAZOLE [Concomitant]
     Route: 048
     Dates: end: 20100101
  11. TAMSULOSIN HCL [Concomitant]
     Route: 048
     Dates: end: 20100101
  12. JEVTANA KIT [Suspect]
     Route: 041
     Dates: start: 20100903, end: 20100903
  13. TYLENOL PM [Concomitant]
     Dates: end: 20100101
  14. ROXANOL [Concomitant]
     Dosage: 20 MG PO Q4HR PRN
     Route: 048
     Dates: end: 20100101
  15. FENTANYL [Concomitant]
     Dates: end: 20100810
  16. MS CONTIN [Concomitant]
     Indication: PAIN
     Dates: start: 20100923
  17. JEVTANA KIT [Suspect]
     Route: 041
     Dates: start: 20100927, end: 20100927
  18. PREDNISONE [Concomitant]
     Dates: start: 20100813
  19. PEGFILGRASTIM [Concomitant]
     Dosage: DAY 2
     Route: 058
     Dates: end: 20100101
  20. PROCHLORPERAZINE [Concomitant]
     Dosage: EVERY 6 HOURS AS NEEDED
     Dates: end: 20100101

REACTIONS (12)
  - OEDEMA PERIPHERAL [None]
  - THROMBOCYTOPENIA [None]
  - NAUSEA [None]
  - DISEASE PROGRESSION [None]
  - CONSTIPATION [None]
  - ANAEMIA [None]
  - DEHYDRATION [None]
  - WEIGHT DECREASED [None]
  - BONE PAIN [None]
  - DECREASED APPETITE [None]
  - ASTHENIA [None]
  - HAEMOGLOBIN DECREASED [None]
